FAERS Safety Report 11308810 (Version 1)
Quarter: 2015Q3

REPORT INFORMATION
  Report Type: Spontaneous
  Country: FR (occurrence: FR)
  Receive Date: 20150724
  Receipt Date: 20150724
  Transmission Date: 20151125
  Serious: Yes (Life-Threatening, Hospitalization, Other)
  Sender: FDA-Public Use
  Company Number: FR-ELI_LILLY_AND_COMPANY-FR201507005673

PATIENT
  Age: 51 Year
  Sex: Female

DRUGS (30)
  1. NOVORAPID [Concomitant]
     Active Substance: INSULIN ASPART
  2. CYMBALTA [Suspect]
     Active Substance: DULOXETINE HYDROCHLORIDE
     Indication: PRODUCT USED FOR UNKNOWN INDICATION
     Dosage: UNK
     Route: 048
     Dates: start: 20150413, end: 20150430
  3. OXYNORM [Concomitant]
     Active Substance: OXYCODONE HYDROCHLORIDE
     Dosage: UNK
     Dates: start: 20150212, end: 20150430
  4. HYPERIUM [Concomitant]
     Active Substance: RILMENIDINE PHOSPHATE
  5. VERSATIS [Concomitant]
     Active Substance: LIDOCAINE
  6. ENDOXAN                            /00021101/ [Suspect]
     Active Substance: CYCLOPHOSPHAMIDE
     Indication: SYSTEMIC LUPUS ERYTHEMATOSUS
     Dosage: 1 DF, MONTHLY (1/M)
     Route: 065
     Dates: start: 20150224, end: 20150421
  7. THERALENE [Suspect]
     Active Substance: TRIMEPRAZINE
     Indication: PRODUCT USED FOR UNKNOWN INDICATION
     Dosage: 40 MG, UNK
     Route: 065
     Dates: start: 20150316
  8. LYRICA [Concomitant]
     Active Substance: PREGABALIN
     Dosage: UNK
     Dates: start: 20150301, end: 20150425
  9. FOSAVANCE [Concomitant]
     Active Substance: ALENDRONATE SODIUM\CHOLECALCIFEROL
     Dosage: 70 MG, UNK
     Dates: start: 20150224, end: 20150425
  10. NEXIUM [Concomitant]
     Active Substance: ESOMEPRAZOLE MAGNESIUM
     Dosage: UNK
     Dates: start: 20150128, end: 20150424
  11. NEFOPAM MYLAN [Concomitant]
     Active Substance: NEFOPAM
     Dosage: UNK
     Dates: start: 20150216, end: 20150424
  12. LOXEN                              /00639802/ [Concomitant]
     Active Substance: NICARDIPINE
     Dosage: UNK
     Dates: start: 20150223, end: 20150426
  13. DOLIPRANE [Concomitant]
     Active Substance: ACETAMINOPHEN
     Dosage: UNK
     Dates: start: 20150326, end: 20150425
  14. LEVOTHYROXINE. [Concomitant]
     Active Substance: LEVOTHYROXINE
  15. BACTRIM [Suspect]
     Active Substance: SULFAMETHOXAZOLE\TRIMETHOPRIM
     Indication: PRODUCT USED FOR UNKNOWN INDICATION
     Dosage: UNK
     Dates: start: 20150228, end: 20150425
  16. ATARAX [Concomitant]
     Active Substance: HYDROXYZINE\HYDROXYZINE HYDROCHLORIDE
     Dosage: UNK
     Dates: start: 20150214, end: 20150425
  17. ZARZIO [Concomitant]
     Active Substance: FILGRASTIM
  18. PERINDOPRIL [Concomitant]
     Active Substance: PERINDOPRIL
  19. KEPPRA [Suspect]
     Active Substance: LEVETIRACETAM
     Indication: PRODUCT USED FOR UNKNOWN INDICATION
     Dosage: UNK
     Route: 065
     Dates: start: 20150211, end: 20150302
  20. VITAMIN B9 [Concomitant]
  21. DUROGESIC [Concomitant]
     Active Substance: FENTANYL
  22. VOLTAREN [Suspect]
     Active Substance: DICLOFENAC SODIUM
     Indication: PRODUCT USED FOR UNKNOWN INDICATION
     Dosage: UNK
     Route: 048
     Dates: start: 20150331, end: 20150414
  23. OXYCONTIN [Concomitant]
     Active Substance: OXYCODONE HYDROCHLORIDE
     Dosage: 10 MG, UNK
     Dates: start: 20150416, end: 20150430
  24. VITAMIN B12 [Concomitant]
     Active Substance: CYANOCOBALAMIN
  25. LEVEMIR [Concomitant]
     Active Substance: INSULIN DETEMIR
  26. MOVICOL [Concomitant]
     Active Substance: POLYETHYLENE GLYCOL 3350\POTASSIUM CHLORIDE\SODIUM BICARBONATE\SODIUM CHLORIDE
  27. CALCIDOSE                          /00944201/ [Concomitant]
  28. ENDOXAN                            /00021101/ [Suspect]
     Active Substance: CYCLOPHOSPHAMIDE
     Indication: POSTERIOR REVERSIBLE ENCEPHALOPATHY SYNDROME
  29. CORTANCYL [Concomitant]
     Active Substance: PREDNISONE
  30. LEVEMIR [Concomitant]
     Active Substance: INSULIN DETEMIR

REACTIONS (21)
  - Respiratory depression [Unknown]
  - Toxic epidermal necrolysis [Recovered/Resolved]
  - Lung disorder [Unknown]
  - Cytomegalovirus oesophagitis [Recovered/Resolved]
  - Gastrointestinal haemorrhage [Unknown]
  - Pneumonia cytomegaloviral [Recovered/Resolved]
  - Pyrexia [Recovered/Resolved]
  - Rash maculo-papular [Recovered/Resolved]
  - Pneumonia pneumococcal [Unknown]
  - Tachycardia [Unknown]
  - Pigmentation disorder [Unknown]
  - Stevens-Johnson syndrome [Recovered/Resolved]
  - Erythema [Recovered/Resolved]
  - Dermatophytosis [Recovered/Resolved]
  - Staphylococcal scalded skin syndrome [Recovered/Resolved]
  - Toxicity to various agents [Recovered/Resolved]
  - Mucosal inflammation [Recovered/Resolved]
  - Bicytopenia [Unknown]
  - Skin exfoliation [Recovered/Resolved]
  - Dyspnoea [Unknown]
  - Lichenoid keratosis [Unknown]

NARRATIVE: CASE EVENT DATE: 20150421
